FAERS Safety Report 8364441-2 (Version None)
Quarter: 2012Q2

REPORT INFORMATION
  Report Type: 
  Country: None (occurrence: None)
  Receive Date: 20120516
  Receipt Date: 20120510
  Transmission Date: 20120825
  Serious: Yes (Death, Life-Threatening, Hospitalization, Other)
  Sender: FDA-Public Use
  Company Number: NL-ASTRAZENECA-2012SE28061

PATIENT
  Age: 25004 Day
  Sex: Male

DRUGS (23)
  1. ASPIRIN [Concomitant]
     Route: 048
     Dates: end: 20120425
  2. ASPIRIN [Concomitant]
     Route: 042
     Dates: start: 20120423, end: 20120423
  3. SMOFKABIVEN [Concomitant]
     Indication: NUTRITIONAL SUPPORT
     Route: 042
     Dates: start: 20120425, end: 20120426
  4. METRONIDAZOLE [Concomitant]
     Indication: INFECTION
     Route: 042
     Dates: start: 20120423, end: 20120425
  5. MIDAZOLAM [Concomitant]
     Indication: MUSCLE RELAXANT THERAPY
     Route: 042
     Dates: start: 20120423, end: 20120423
  6. PRIMPERAN TAB [Concomitant]
     Indication: NAUSEA
     Route: 042
     Dates: start: 20120423
  7. SIMVASTATIN [Concomitant]
     Indication: HYPERCHOLESTEROLAEMIA
     Route: 048
     Dates: end: 20120425
  8. FUROSEMIDE [Concomitant]
     Indication: DIURETIC THERAPY
     Route: 042
     Dates: start: 20120424, end: 20120426
  9. FLUMAZENIL [Concomitant]
     Indication: DRUG TOXICITY PROPHYLAXIS
     Route: 042
     Dates: start: 20120423, end: 20120423
  10. MOVICOLON [Concomitant]
     Indication: CONSTIPATION
     Route: 048
     Dates: start: 20120423, end: 20120425
  11. PROPOFOL [Concomitant]
     Indication: PAIN
     Route: 042
     Dates: start: 20120423, end: 20120425
  12. FENTANYL-100 [Concomitant]
     Indication: PAIN
     Route: 042
     Dates: start: 20120423, end: 20120423
  13. AZD6140 [Suspect]
     Indication: CORONARY ARTERY DISEASE
     Route: 048
     Dates: start: 20110701
  14. METOPROLOL TARTRATE [Concomitant]
     Indication: HYPERTENSION
     Route: 048
     Dates: end: 20120423
  15. PANTOPRAZOLE [Concomitant]
     Indication: HYPERCHLORHYDRIA
     Route: 048
  16. FRAXIPARINE [Concomitant]
     Indication: THROMBOSIS PROPHYLAXIS
     Route: 058
     Dates: start: 20120423, end: 20120424
  17. ASPEGIC 1000 [Concomitant]
     Indication: CORONARY ARTERY DISEASE
     Route: 042
     Dates: start: 20120423, end: 20120423
  18. FINASTERIDE AUROBINDO [Concomitant]
     Indication: BENIGN PROSTATIC HYPERPLASIA
     Route: 048
     Dates: end: 20120425
  19. HYDROCORTISONE [Concomitant]
     Indication: NERVOUS SYSTEM DISORDER
     Route: 042
     Dates: start: 20120424, end: 20120425
  20. ZOFIL [Concomitant]
     Indication: CORONARY ARTERY DISEASE
     Route: 048
  21. CEFUROXIME [Concomitant]
     Indication: INFECTION
     Route: 042
     Dates: start: 20120423, end: 20120425
  22. MORPHINE [Concomitant]
     Indication: PAIN
     Route: 042
     Dates: start: 20120423, end: 20120424
  23. ACETAMINOPHEN [Concomitant]
     Indication: PAIN
     Route: 042
     Dates: start: 20120423, end: 20120423

REACTIONS (5)
  - ULCER HAEMORRHAGE [None]
  - GASTRIC ULCER [None]
  - ILIAC ARTERY OCCLUSION [None]
  - RENAL FAILURE [None]
  - INTESTINAL ISCHAEMIA [None]
